FAERS Safety Report 9516628 (Version 1)
Quarter: 2013Q3

REPORT INFORMATION
  Report Type: Spontaneous
  Country: US (occurrence: None)
  Receive Date: 20130910
  Receipt Date: 20130910
  Transmission Date: 20140515
  Serious: Yes (Death)
  Sender: FDA-Public Use
  Company Number: None

PATIENT
  Age: 79 Year
  Sex: Male
  Weight: 56.7 kg

DRUGS (9)
  1. GABAPENTIN [Suspect]
     Indication: BACK PAIN
     Dosage: 300 MG 2 BID PO
     Route: 048
     Dates: start: 2010
  2. PREDNISONE [Concomitant]
  3. ADVAIR [Concomitant]
  4. DUONEB [Concomitant]
  5. LISINOPRIL [Concomitant]
  6. AGGRENOX [Concomitant]
  7. THEOPHYLLINE [Concomitant]
  8. VIT D [Concomitant]
  9. LYSINE [Concomitant]

REACTIONS (2)
  - Depression [None]
  - Completed suicide [None]
